FAERS Safety Report 20885472 (Version 2)
Quarter: 2022Q2

REPORT INFORMATION
  Report Type: Spontaneous
  Country: JP (occurrence: JP)
  Receive Date: 20220527
  Receipt Date: 20220531
  Transmission Date: 20220721
  Serious: Yes (Death, Life-Threatening, Other)
  Sender: FDA-Public Use
  Company Number: JP-PFIZER INC-202200066355

PATIENT
  Age: 68 Year
  Sex: Male
  Weight: 70 kg

DRUGS (3)
  1. BESPONSA [Suspect]
     Active Substance: INOTUZUMAB OZOGAMICIN
     Indication: Acute lymphocytic leukaemia recurrent
     Dosage: 0.8 MG, 1X/DAY, CYCLE1
     Route: 041
     Dates: start: 20211104, end: 20211104
  2. BESPONSA [Suspect]
     Active Substance: INOTUZUMAB OZOGAMICIN
     Dosage: 0.5 MG, 1X/DAY, CYCLE 1
     Route: 041
     Dates: start: 20211111, end: 20211111
  3. BESPONSA [Suspect]
     Active Substance: INOTUZUMAB OZOGAMICIN
     Dosage: 0.5 MG, 1X/DAY, CYCLE 1
     Route: 041
     Dates: start: 20211118, end: 20211118

REACTIONS (5)
  - Venoocclusive liver disease [Fatal]
  - Multiple organ dysfunction syndrome [Fatal]
  - Second primary malignancy [Unknown]
  - Myelodysplastic syndrome [Unknown]
  - Bacteraemia [Recovering/Resolving]

NARRATIVE: CASE EVENT DATE: 20211201
